FAERS Safety Report 20038720 (Version 1)
Quarter: 2021Q4

REPORT INFORMATION
  Report Type: Spontaneous
  Country: US (occurrence: US)
  Receive Date: 20211105
  Receipt Date: 20211105
  Transmission Date: 20220303
  Serious: Yes (Other)
  Sender: FDA-Public Use
  Company Number: US-PFIZER INC-2018323543

PATIENT
  Age: 49 Year
  Sex: Female

DRUGS (2)
  1. LYRICA [Suspect]
     Active Substance: PREGABALIN
     Dosage: 750 MG, DAILY (2 CAPSULES BY MOUTH IN THE AM AND 2 IN THE PM AND 1 CAP MIDDAY)
     Route: 048
  2. LYRICA [Suspect]
     Active Substance: PREGABALIN
     Dosage: 300 MG, 2X/DAY (ONE CAPSULE 2 IN AM AND 2 IN PM)
     Route: 048

REACTIONS (2)
  - Diabetes mellitus [Unknown]
  - Prescribed overdose [Unknown]
